FAERS Safety Report 11115510 (Version 2)
Quarter: 2015Q2

REPORT INFORMATION
  Report Type: Spontaneous
  Country: BR (occurrence: BR)
  Receive Date: 20150515
  Receipt Date: 20150601
  Transmission Date: 20150821
  Serious: Yes (Other)
  Sender: FDA-Public Use
  Company Number: BR-SA-2015SA064274

PATIENT
  Age: 22 Year
  Sex: Female
  Weight: 55 kg

DRUGS (1)
  1. LANTUS [Suspect]
     Active Substance: INSULIN GLARGINE
     Indication: TYPE 1 DIABETES MELLITUS
     Dosage: 3ML CARTRIDGE.
     Route: 058
     Dates: start: 1996

REACTIONS (7)
  - Blindness unilateral [Unknown]
  - Renal impairment [Unknown]
  - Injection site discolouration [Recovered/Resolved]
  - Injection site reaction [Recovered/Resolved]
  - Visual acuity reduced [Unknown]
  - Injection site mass [Recovered/Resolved]
  - Retinal detachment [Not Recovered/Not Resolved]

NARRATIVE: CASE EVENT DATE: 2006
